FAERS Safety Report 17620163 (Version 1)
Quarter: 2020Q2

REPORT INFORMATION
  Report Type: Spontaneous
  Country: US (occurrence: US)
  Receive Date: 20200403
  Receipt Date: 20200403
  Transmission Date: 20200713
  Serious: No
  Sender: FDA-Public Use
  Company Number: US-009507513-2004USA000431

PATIENT
  Age: 27 Year
  Sex: Male

DRUGS (1)
  1. PREGNYL [Suspect]
     Active Substance: CHORIOGONADOTROPIN ALFA
     Indication: BLOOD TESTOSTERONE DECREASED
     Dosage: 2500 (UNIT NOT PROVIDE), 3 TIMES A WEEK, ROUTE: INJECTION
     Dates: start: 201907

REACTIONS (3)
  - Product dose omission [Unknown]
  - Blood testosterone abnormal [Not Recovered/Not Resolved]
  - Headache [Not Recovered/Not Resolved]

NARRATIVE: CASE EVENT DATE: 202003
